FAERS Safety Report 9121237 (Version 1)
Quarter: 2013Q1

REPORT INFORMATION
  Report Type: Spontaneous
  Country: BY (occurrence: BY)
  Receive Date: 20130225
  Receipt Date: 20130225
  Transmission Date: 20140127
  Serious: Yes (Life-Threatening, Hospitalization)
  Sender: FDA-Public Use
  Company Number: BY-PFIZER INC-2013067165

PATIENT
  Age: 48 Year
  Sex: Male

DRUGS (1)
  1. SUTENT [Suspect]
     Indication: METASTATIC RENAL CELL CARCINOMA
     Dosage: 50 MG, CYCLIC,  4 WEEKS THEN 2 WEEKS OFF
     Route: 048
     Dates: start: 20120206, end: 20130201

REACTIONS (2)
  - Thrombocytopenia [Recovering/Resolving]
  - Hepatorenal failure [Recovering/Resolving]
